FAERS Safety Report 21217188 (Version 2)
Quarter: 2022Q3

REPORT INFORMATION
  Report Type: Spontaneous
  Country: US (occurrence: US)
  Receive Date: 20220816
  Receipt Date: 20220907
  Transmission Date: 20221027
  Serious: No
  Sender: FDA-Public Use
  Company Number: None

PATIENT

DRUGS (1)
  1. LORAZEPAM [Suspect]
     Active Substance: LORAZEPAM
     Indication: Mast cell activation syndrome
     Route: 065

REACTIONS (5)
  - Paraesthesia [Unknown]
  - Swelling [Unknown]
  - Hypersensitivity [Unknown]
  - Product physical issue [Unknown]
  - Product use in unapproved indication [Unknown]
